FAERS Safety Report 17946176 (Version 1)
Quarter: 2020Q2

REPORT INFORMATION
  Report Type: Spontaneous
  Country: US (occurrence: US)
  Receive Date: 20200625
  Receipt Date: 20200625
  Transmission Date: 20200714
  Serious: No
  Sender: FDA-Public Use
  Company Number: US-009507513-2006USA006369

PATIENT
  Age: 73 Year
  Sex: Male

DRUGS (3)
  1. INVANZ [Suspect]
     Active Substance: ERTAPENEM SODIUM
     Indication: ENTEROBACTER INFECTION
     Dosage: 1 GRAM, QD
     Route: 042
  2. CUBICIN [Suspect]
     Active Substance: DAPTOMYCIN
     Indication: HAEMARTHROSIS
     Dosage: 6 MILLIGRAM/KILOGRAM, QD
     Route: 042
  3. INVANZ [Suspect]
     Active Substance: ERTAPENEM SODIUM
     Indication: HAEMARTHROSIS

REACTIONS (1)
  - Product use in unapproved indication [Unknown]
